FAERS Safety Report 21179768 (Version 2)
Quarter: 2022Q3

REPORT INFORMATION
  Report Type: Report from Study
  Country: US (occurrence: US)
  Receive Date: 20220805
  Receipt Date: 20220805
  Transmission Date: 20221027
  Serious: No
  Sender: FDA-Public Use
  Company Number: US-NOVARTISTESTPH-NVSC2022US175745

PATIENT
  Sex: Female
  Weight: 47 kg

DRUGS (1)
  1. OMNITROPE [Suspect]
     Active Substance: SOMATROPIN
     Indication: Hypopituitarism
     Dosage: 1.2 ML, QD
     Route: 058

REACTIONS (3)
  - Eye swelling [Unknown]
  - Headache [Unknown]
  - Incorrect dose administered [Unknown]
